FAERS Safety Report 24697449 (Version 2)
Quarter: 2025Q1

REPORT INFORMATION
  Report Type: Spontaneous
  Country: US (occurrence: US)
  Receive Date: 20241204
  Receipt Date: 20250306
  Transmission Date: 20250409
  Serious: No
  Sender: MYLAN
  Company Number: US-MYLANLABS-2024M1105272

PATIENT
  Sex: Female
  Weight: 65.77 kg

DRUGS (4)
  1. WIXELA INHUB [Suspect]
     Active Substance: FLUTICASONE PROPIONATE\SALMETEROL XINAFOATE
     Indication: Asthma
     Dosage: 250/50 MILLIGRAM, BID (TWICE)
     Dates: start: 2024
  2. WIXELA INHUB [Suspect]
     Active Substance: FLUTICASONE PROPIONATE\SALMETEROL XINAFOATE
     Dosage: 250/50 MILLIGRAM, BID (TWICE)
     Route: 055
     Dates: start: 2024
  3. WIXELA INHUB [Suspect]
     Active Substance: FLUTICASONE PROPIONATE\SALMETEROL XINAFOATE
     Dosage: 250/50 MILLIGRAM, BID (TWICE)
     Route: 055
     Dates: start: 2024
  4. WIXELA INHUB [Suspect]
     Active Substance: FLUTICASONE PROPIONATE\SALMETEROL XINAFOATE
     Dosage: 250/50 MILLIGRAM, BID (TWICE)
     Dates: start: 2024

REACTIONS (9)
  - Asthma [Unknown]
  - Cough [Unknown]
  - Dyspnoea [Unknown]
  - Drug ineffective [Unknown]
  - Wrong technique in device usage process [Unknown]
  - Product substitution issue [Unknown]
  - Incorrect dose administered [Unknown]
  - Diarrhoea [Unknown]
  - Device delivery system issue [Unknown]
